FAERS Safety Report 17396683 (Version 3)
Quarter: 2020Q3

REPORT INFORMATION
  Report Type: Spontaneous
  Country: IT (occurrence: IT)
  Receive Date: 20200210
  Receipt Date: 20200928
  Transmission Date: 20201102
  Serious: Yes (Hospitalization, Disabling, Other)
  Sender: FDA-Public Use
  Company Number: IT-009507513-1003ITA00022

PATIENT
  Sex: Male

DRUGS (1)
  1. PROPECIA [Suspect]
     Active Substance: FINASTERIDE
     Indication: ANDROGENETIC ALOPECIA
     Dosage: 1 MG, ONCE A DAY
     Route: 048
     Dates: start: 1999, end: 200712

REACTIONS (20)
  - Malabsorption [Unknown]
  - Colon adenoma [Unknown]
  - Hypervitaminosis D [Recovered/Resolved]
  - Autoimmune disorder [Unknown]
  - Mycoplasma test positive [Unknown]
  - Hyperferritinaemia [Unknown]
  - Enterococcus test positive [Recovered/Resolved]
  - Large intestine polyp [Unknown]
  - Urine calcium increased [Unknown]
  - Osteopenia [Unknown]
  - Blood zinc decreased [Unknown]
  - Post 5-alpha-reductase inhibitor syndrome [Not Recovered/Not Resolved]
  - Hypertransaminasaemia [Unknown]
  - Ill-defined disorder [Unknown]
  - Ill-defined disorder [Unknown]
  - Hypoparathyroidism [Recovered/Resolved]
  - Blood zinc decreased [Unknown]
  - Hypercholesterolaemia [Unknown]
  - Calcium ionised decreased [Unknown]
  - Faecaloma [Unknown]

NARRATIVE: CASE EVENT DATE: 2007
